FAERS Safety Report 5357416-9 (Version None)
Quarter: 2007Q2

REPORT INFORMATION
  Report Type: 
  Country: None (occurrence: None)
  Receive Date: 20070612
  Receipt Date: 20070529
  Transmission Date: 20071010
  Serious: Yes (Hospitalization)
  Sender: FDA-Public Use
  Company Number: 100#08#2006-01389

PATIENT
  Age: 60 Year
  Sex: Female

DRUGS (7)
  1. WARFARIN SODIUM [Suspect]
     Indication: PULMONARY EMBOLISM
  2. CEFALEXIN (CEFALEXIN) (CEFALEXIN) [Suspect]
     Indication: URINARY TRACT INFECTION
  3. METRONIDAZOLE [Suspect]
     Indication: URINARY TRACT INFECTION
  4. TRIMETHOPRIM (TRIMETHOPRIM) (TRIMETHOPRIM) [Suspect]
     Indication: URINARY TRACT INFECTION
  5. ACEBUTOLOL (ACEBUTOLOL) (ACEBUTOLOL) [Concomitant]
  6. INDAPAMIDE (INDAPAMIDE) (INDAPAMIDE) [Concomitant]
  7. NIFEDIPINE [Concomitant]

REACTIONS (11)
  - ABDOMINAL PAIN [None]
  - DEEP VEIN THROMBOSIS [None]
  - DRUG INTERACTION [None]
  - HAEMATOMA [None]
  - HAEMOGLOBIN DECREASED [None]
  - HYPOVOLAEMIC SHOCK [None]
  - INTERNATIONAL NORMALISED RATIO DECREASED [None]
  - INTERNATIONAL NORMALISED RATIO INCREASED [None]
  - RETROPERITONEAL HAEMATOMA [None]
  - URETERAL DISORDER [None]
  - URINARY TRACT INFECTION [None]
